FAERS Safety Report 12526339 (Version 9)
Quarter: 2017Q2

REPORT INFORMATION
  Report Type: Spontaneous
  Country: US (occurrence: US)
  Receive Date: 20160705
  Receipt Date: 20170426
  Transmission Date: 20170830
  Serious: Yes (Other)
  Sender: FDA-Public Use
  Company Number: US-PFIZER INC-2016324944

PATIENT
  Age: 57 Year
  Sex: Female
  Weight: 76 kg

DRUGS (5)
  1. IBRANCE [Suspect]
     Active Substance: PALBOCICLIB
     Indication: BREAST CANCER
     Dosage: UNK
  2. IBRANCE [Suspect]
     Active Substance: PALBOCICLIB
     Indication: BREAST CANCER METASTATIC
     Dosage: 125 MG, CYCLIC (DAYS 1-21 Q28 DAYS)
     Route: 048
     Dates: start: 20160614
  3. IBRANCE [Suspect]
     Active Substance: PALBOCICLIB
     Dosage: 100 MG, CYCLIC(D1-D21 Q28 D)
     Route: 048
     Dates: start: 20161020
  4. IBRANCE [Suspect]
     Active Substance: PALBOCICLIB
     Dosage: 100 MG, CYCLIC (1D-21 D Q 28D)
     Route: 048
     Dates: start: 20160614
  5. IBRANCE [Suspect]
     Active Substance: PALBOCICLIB
     Dosage: 100 MG, CYCLIC (DAYS 1-21 Q28 DAYS)/ D1-D21 Q 28 D
     Route: 048
     Dates: start: 20160614, end: 20170308

REACTIONS (6)
  - Platelet count decreased [Not Recovered/Not Resolved]
  - Fatigue [Unknown]
  - Viral upper respiratory tract infection [Unknown]
  - Stomatitis [Unknown]
  - Drug dose omission [Unknown]
  - Laboratory test abnormal [Unknown]
